FAERS Safety Report 10441390 (Version 1)
Quarter: 2014Q3

REPORT INFORMATION
  Report Type: Spontaneous
  Country: BR (occurrence: BR)
  Receive Date: 20140909
  Receipt Date: 20140909
  Transmission Date: 20150326
  Serious: Yes (Hospitalization)
  Sender: FDA-Public Use
  Company Number: BR-ASTRAZENECA-2014SE66373

PATIENT
  Age: 1055 Month
  Sex: Female
  Weight: 39 kg

DRUGS (12)
  1. MONOCORDIL [Concomitant]
     Active Substance: ISOSORBIDE MONONITRATE
     Route: 048
     Dates: start: 201401
  2. PLAVIX [Concomitant]
     Active Substance: CLOPIDOGREL BISULFATE
     Dates: end: 2014
  3. INSULIN [Concomitant]
     Active Substance: INSULIN NOS
     Indication: DIABETES MELLITUS
     Dosage: EVERY DAY
     Route: 058
     Dates: start: 201311
  4. CONCOR [Concomitant]
     Active Substance: BISOPROLOL FUMARATE
     Route: 048
     Dates: start: 201401
  5. ATENSINA [Concomitant]
     Active Substance: CLONIDINE
     Dosage: 0.100 MG BID
     Route: 048
     Dates: start: 201401
  6. APRESOLINE HYDROCHLORIDE [Concomitant]
     Active Substance: HYDRALAZINE HYDROCHLORIDE
     Route: 048
     Dates: start: 201401
  7. BRILINTA [Suspect]
     Active Substance: TICAGRELOR
     Route: 048
     Dates: start: 201311
  8. SIMVASTATIN. [Concomitant]
     Active Substance: SIMVASTATIN
     Route: 048
     Dates: start: 201401
  9. LOSARTAN [Concomitant]
     Active Substance: LOSARTAN
     Dates: end: 2014
  10. UNKNOWN [Concomitant]
     Active Substance: UNSPECIFIED INGREDIENT
     Indication: VITAMIN SUPPLEMENTATION
     Route: 048
  11. ALDACTONE [Concomitant]
     Active Substance: SPIRONOLACTONE
     Dates: end: 2014
  12. SOMALGIN [Concomitant]
     Active Substance: ASPIRIN\DIHYDROXYALUMINUM AMINOACETATE ANHYDROUS\MAGNESIUM CARBONATE
     Route: 048
     Dates: start: 201401

REACTIONS (4)
  - Off label use [Not Recovered/Not Resolved]
  - Renal failure [Unknown]
  - Peripheral swelling [Recovered/Resolved]
  - Blood urea abnormal [Unknown]

NARRATIVE: CASE EVENT DATE: 201311
